FAERS Safety Report 25726306 (Version 1)
Quarter: 2025Q3

REPORT INFORMATION
  Report Type: Spontaneous
  Country: US (occurrence: US)
  Receive Date: 20250826
  Receipt Date: 20250826
  Transmission Date: 20251020
  Serious: No
  Sender: SANOFI AVENTIS
  Company Number: US-SA-2025SA254313

PATIENT
  Age: 56 Year
  Sex: Female
  Weight: 49.8 kg

DRUGS (10)
  1. DUPIXENT [Suspect]
     Active Substance: DUPILUMAB
     Indication: Asthma
     Dosage: 300 MG, QOW
     Route: 058
     Dates: start: 20250818
  2. NURTEC ODT [Concomitant]
     Active Substance: RIMEGEPANT SULFATE
  3. PROGESTERONE [Concomitant]
     Active Substance: PROGESTERONE
  4. VALACYCLOVIR [Concomitant]
     Active Substance: VALACYCLOVIR HYDROCHLORIDE
  5. VEOZAH [Concomitant]
     Active Substance: FEZOLINETANT
  6. LEVALBUTEROL [Concomitant]
     Active Substance: LEVALBUTEROL
  7. NARATRIPTAN [Concomitant]
     Active Substance: NARATRIPTAN HYDROCHLORIDE
  8. TRELEGY ELLIPTA [Concomitant]
     Active Substance: FLUTICASONE FUROATE\UMECLIDINIUM BROMIDE\VILANTEROL TRIFENATATE
  9. ESZOPICLONE [Concomitant]
     Active Substance: ESZOPICLONE
  10. ACETYLCYSTEINE [Concomitant]
     Active Substance: ACETYLCYSTEINE

REACTIONS (1)
  - Oral herpes [Unknown]

NARRATIVE: CASE EVENT DATE: 20250820
